FAERS Safety Report 23696106 (Version 1)
Quarter: 2024Q2

REPORT INFORMATION
  Report Type: Other
  Country: GR (occurrence: None)
  Receive Date: 20240402
  Receipt Date: 20240402
  Transmission Date: 20240716
  Serious: Yes (Other)
  Sender: FDA-Public Use
  Company Number: GR-AMGEN-GRCSP2024055482

PATIENT
  Age: 45 Year
  Sex: Female

DRUGS (5)
  1. BEVACIZUMAB [Suspect]
     Active Substance: BEVACIZUMAB
     Indication: Mesothelioma
     Dosage: UNK
     Route: 065
     Dates: start: 202012
  2. PEMETREXED [Concomitant]
     Active Substance: PEMETREXED
     Indication: Mesothelioma
     Dates: start: 202003
  3. PEMETREXED [Concomitant]
     Active Substance: PEMETREXED
     Dates: start: 201911
  4. PEMETREXED [Concomitant]
     Active Substance: PEMETREXED
     Dates: start: 202012
  5. PEMETREXED [Concomitant]
     Active Substance: PEMETREXED
     Dates: start: 202202

REACTIONS (3)
  - Systemic lupus erythematosus [Unknown]
  - Lupus-like syndrome [Unknown]
  - Off label use [Unknown]

NARRATIVE: CASE EVENT DATE: 20201201
